FAERS Safety Report 8855809 (Version 1)
Quarter: 2012Q4

REPORT INFORMATION
  Report Type: 
  Country: US (occurrence: US)
  Receive Date: 20121023
  Receipt Date: 20121023
  Transmission Date: 20130627
  Serious: No
  Sender: FDA-Public Use
  Company Number: US-AMGEN-USASP2012058423

PATIENT
  Age: 60 Year
  Sex: Female

DRUGS (1)
  1. ENBREL [Suspect]
     Indication: RHEUMATOID ARTHRITIS
     Dosage: 50 mg, qwk
     Route: 058
     Dates: start: 2007

REACTIONS (10)
  - Rheumatoid arthritis [Unknown]
  - Rash [Recovered/Resolved]
  - Lethargy [Recovered/Resolved]
  - Liver disorder [Recovered/Resolved]
  - Abdominal pain [Recovered/Resolved]
  - Gastrooesophageal reflux disease [Not Recovered/Not Resolved]
  - White blood cell count decreased [Recovered/Resolved]
  - Jaundice [Recovered/Resolved]
  - Food intolerance [Not Recovered/Not Resolved]
  - Spleen malformation [Not Recovered/Not Resolved]
